FAERS Safety Report 5372772-3 (Version None)
Quarter: 2007Q2

REPORT INFORMATION
  Report Type: 
  Country: None (occurrence: None)
  Receive Date: 20070621
  Receipt Date: 20060622
  Transmission Date: 20071010
  Serious: Yes (Other)
  Sender: FDA-Public Use
  Company Number: US-JNJFOC-20060605313

PATIENT
  Age: 58 Year
  Sex: Female

DRUGS (3)
  1. HALDOL DECANOATE (HALOPERIDOL DECANOATE) INJECTION [Suspect]
     Indication: SCHIZOAFFECTIVE DISORDER
     Dosage: INTRAMUSCULAR
     Route: 030
     Dates: end: 20060301
  2. RISPERDAL [Suspect]
     Indication: SCHIZOAFFECTIVE DISORDER
     Dosage: 37.5 MG, 1 IN 2 WEEK, INTRAMUSCULAR
     Route: 030
     Dates: start: 20060601
  3. RISPERDAL [Concomitant]

REACTIONS (2)
  - AGITATION [None]
  - NEUROLEPTIC MALIGNANT SYNDROME [None]
